FAERS Safety Report 5307031-8 (Version None)
Quarter: 2007Q2

REPORT INFORMATION
  Report Type: 
  Country: None (occurrence: None)
  Receive Date: 20070425
  Receipt Date: 20070416
  Transmission Date: 20071010
  Serious: Yes (Hospitalization)
  Sender: FDA-Public Use
  Company Number: US-ROCHE-486036

PATIENT
  Age: 70 Year
  Sex: Male

DRUGS (4)
  1. DEMADEX [Suspect]
     Dosage: REPORTED AS 80 MG IN THE MORNING AND 60 MG IN THE AFTERNOON.
     Route: 065
     Dates: start: 20020615, end: 20070109
  2. LASIX [Suspect]
     Route: 065
  3. CHEMOTHERAPY [Suspect]
     Indication: MANTLE CELL LYMPHOMA
     Route: 065
     Dates: end: 20051215
  4. UNSPECIFIED DRUGS [Concomitant]

REACTIONS (5)
  - BLOOD CREATININE INCREASED [None]
  - CARDIAC FAILURE CONGESTIVE [None]
  - LUNG INFECTION [None]
  - MANTLE CELL LYMPHOMA [None]
  - SINUSITIS [None]
